FAERS Safety Report 24928099 (Version 1)
Quarter: 2025Q1

REPORT INFORMATION
  Report Type: Spontaneous
  Country: IT (occurrence: IT)
  Receive Date: 20250205
  Receipt Date: 20250205
  Transmission Date: 20250409
  Serious: Yes (Life-Threatening, Hospitalization, Other)
  Sender: MERCK
  Company Number: None

PATIENT
  Age: 71 Year
  Sex: Male

DRUGS (1)
  1. KEYTRUDA [Suspect]
     Active Substance: PEMBROLIZUMAB
     Indication: Lung carcinoma cell type unspecified stage IV
     Dosage: 200 MG EVERY 21 DAYS, ALREADY SUSPENDED FOR PANCOLITIS FROM 10/09 TO 4/11
     Route: 042
     Dates: start: 20240408, end: 20241216

REACTIONS (1)
  - Immune-mediated proctitis [Not Recovered/Not Resolved]

NARRATIVE: CASE EVENT DATE: 20241230
